FAERS Safety Report 5298885-2 (Version None)
Quarter: 2007Q2

REPORT INFORMATION
  Report Type: 
  Country: None (occurrence: None)
  Receive Date: 20070410
  Receipt Date: 20070402
  Transmission Date: 20071010
  Serious: Yes (Other)
  Sender: FDA-Public Use
  Company Number: A0646038A

PATIENT
  Sex: Male

DRUGS (2)
  1. LAMICTAL [Suspect]
     Indication: CONVULSION
     Dosage: ORAL
     Route: 048
  2. PARACETAMOL (FORMULATION UNKNOWN) (ACETAMINOPHEN) [Suspect]
     Dosage: SEE DOSAGE TEXT

REACTIONS (3)
  - COMPLEX PARTIAL SEIZURES [None]
  - DEJA VU [None]
  - DRUG LEVEL DECREASED [None]
